FAERS Safety Report 7562490-5 (Version None)
Quarter: 2011Q2

REPORT INFORMATION
  Report Type: 
  Country: None (occurrence: None)
  Receive Date: 20110621
  Receipt Date: 20110621
  Transmission Date: 20111010
  Serious: Yes (Hospitalization)
  Sender: FDA-Public Use
  Company Number: None

PATIENT
  Sex: Female
  Weight: 70.3075 kg

DRUGS (14)
  1. TESTOSTERONE [Concomitant]
  2. PROMETRIUM [Concomitant]
  3. VITAMIN D [Concomitant]
  4. DONNATAL [Concomitant]
  5. BENTYL [Concomitant]
  6. AMBIEN [Concomitant]
  7. XANAX XR [Concomitant]
  8. VITAMIN E [Concomitant]
  9. WELLBUTRIN SR [Concomitant]
  10. PERCOCET [Concomitant]
  11. ATIVAN [Concomitant]
  12. LIPITOR [Suspect]
     Indication: HYPERCHOLESTEROLAEMIA
     Dosage: 10MG QD PO
     Route: 048
     Dates: start: 20110504, end: 20110603
  13. VIVELLE-DOT [Concomitant]
  14. XIFAXAN [Concomitant]

REACTIONS (3)
  - NEURALGIA [None]
  - PAIN IN EXTREMITY [None]
  - MUSCULAR WEAKNESS [None]
